FAERS Safety Report 18986077 (Version 2)
Quarter: 2022Q2

REPORT INFORMATION
  Report Type: Spontaneous
  Country: US (occurrence: US)
  Receive Date: 20210309
  Receipt Date: 20220419
  Transmission Date: 20220721
  Serious: Yes (Hospitalization, Other)
  Sender: FDA-Public Use
  Company Number: US-GW PHARMA-202102USGW00588

PATIENT
  Age: 21 Year
  Sex: Male

DRUGS (2)
  1. EPIDIOLEX [Suspect]
     Active Substance: CANNABIDIOL
     Indication: Product used for unknown indication
     Dosage: UNK
     Route: 048
  2. VALPROIC ACID [Concomitant]
     Active Substance: VALPROIC ACID
     Indication: Product used for unknown indication
     Dosage: UNK

REACTIONS (11)
  - Head injury [Unknown]
  - Medical device change [Unknown]
  - Balance disorder [Unknown]
  - Fall [Unknown]
  - Concussion [Unknown]
  - Gait disturbance [Unknown]
  - Vomiting [Unknown]
  - Seizure [Unknown]
  - Tracheostomy [Unknown]
  - Anger [Unknown]
  - Weight increased [Unknown]

NARRATIVE: CASE EVENT DATE: 20210201
